FAERS Safety Report 20109614 (Version 1)
Quarter: 2021Q4

REPORT INFORMATION
  Report Type: Spontaneous
  Country: US (occurrence: None)
  Receive Date: 20211124
  Receipt Date: 20211124
  Transmission Date: 20220303
  Serious: Yes (Hospitalization)
  Sender: FDA-Public Use
  Company Number: None

PATIENT
  Age: 64 Year
  Sex: Female
  Weight: 78.5 kg

DRUGS (14)
  1. TASIGNA [Suspect]
     Active Substance: NILOTINIB
     Indication: Chronic myeloid leukaemia
     Dosage: FREQUENCY : TWICE A DAY;?
     Route: 048
  2. GABAPENTIN [Concomitant]
     Active Substance: GABAPENTIN
  3. Metoclopramide 5mg tablet [Concomitant]
  4. METOPROLOL TARTRATE [Concomitant]
     Active Substance: METOPROLOL TARTRATE
  5. Azelastine 0.1% solution [Concomitant]
  6. MONTELUKAST [Concomitant]
     Active Substance: MONTELUKAST SODIUM
  7. Centrum Silver tablet [Concomitant]
  8. Colace 100mg capsule [Concomitant]
  9. Flonase 50mg suspension [Concomitant]
  10. Melatonin 5mg tablet [Concomitant]
  11. Miralax 17gm powder [Concomitant]
  12. Ondansetron 4mg ODT [Concomitant]
  13. Culturelle Probiotic capsule [Concomitant]
  14. Vitamin B-12 5000 unit tablet [Concomitant]

REACTIONS (1)
  - Small intestinal obstruction [None]

NARRATIVE: CASE EVENT DATE: 20211121
